FAERS Safety Report 21454044 (Version 3)
Quarter: 2023Q2

REPORT INFORMATION
  Report Type: Spontaneous
  Country: US (occurrence: US)
  Receive Date: 20221013
  Receipt Date: 20230411
  Transmission Date: 20230721
  Serious: No
  Sender: FDA-Public Use
  Company Number: US-BRISTOL-MYERS SQUIBB COMPANY-2022-120926

PATIENT
  Age: 86 Year
  Sex: Male

DRUGS (2)
  1. POMALYST [Suspect]
     Active Substance: POMALIDOMIDE
     Indication: Plasma cell myeloma
     Dosage: TAKE 1 CAPSULE BY MOUTH EVERY DAY FOR 3 WEEKS ON, THEN 1 WEEK OFF.
     Route: 048
  2. DEXAM [DEXAMETHASONE] [Concomitant]
     Indication: Product used for unknown indication

REACTIONS (12)
  - Fatigue [Unknown]
  - Arthralgia [Unknown]
  - Pain [Unknown]
  - Apathy [Unknown]
  - Somnolence [Unknown]
  - Depression [Unknown]
  - Anxiety [Unknown]
  - Constipation [Unknown]
  - Dyspnoea [Unknown]
  - Pollakiuria [Unknown]
  - Nasopharyngitis [Unknown]
  - Coronavirus infection [Unknown]
